FAERS Safety Report 9484260 (Version 1)
Quarter: 2013Q3

REPORT INFORMATION
  Report Type: Spontaneous
  Country: US (occurrence: US)
  Receive Date: 20130828
  Receipt Date: 20130828
  Transmission Date: 20140515
  Serious: Yes (Hospitalization, Other)
  Sender: FDA-Public Use
  Company Number: US-AMGEN-KDL397707

PATIENT
  Age: 45 Year
  Sex: Female

DRUGS (3)
  1. ENBREL [Suspect]
     Indication: RHEUMATOID ARTHRITIS
     Dosage: 50 MG, QWK
     Route: 058
     Dates: start: 19990401
  2. METHOTREXATE [Concomitant]
     Dosage: 20 MG, QWK
     Route: 048
  3. HYDROXYCHLOROQUINE SULFATE [Concomitant]

REACTIONS (13)
  - Ankle fracture [Recovered/Resolved]
  - Pneumothorax [Recovered/Resolved]
  - Rib fracture [Recovered/Resolved]
  - Road traffic accident [Recovered/Resolved]
  - Adrenal adenoma [Not Recovered/Not Resolved]
  - Fibrocystic breast disease [Not Recovered/Not Resolved]
  - Cardiomyopathy [Not Recovered/Not Resolved]
  - Medical device removal [Recovered/Resolved]
  - Injection site warmth [Unknown]
  - Rheumatoid arthritis [Unknown]
  - Incision site infection [Recovered/Resolved]
  - Injection site pain [Unknown]
  - Injection site erythema [Unknown]
